FAERS Safety Report 4757031-1 (Version None)
Quarter: 2005Q3

REPORT INFORMATION
  Report Type: 
  Country: None (occurrence: None)
  Receive Date: 20050829
  Receipt Date: 20050829
  Transmission Date: 20060218
  Serious: No
  Sender: FDA-Public Use
  Company Number: None

PATIENT
  Age: 78 Year
  Sex: Male
  Weight: 87.9978 kg

DRUGS (18)
  1. CISPLATIN [Suspect]
  2. ETOPOSIDE [Suspect]
  3. RADIATION [Suspect]
  4. REMERON [Concomitant]
  5. TESSALON [Concomitant]
  6. TOPROL-XL [Concomitant]
  7. PREVACID [Concomitant]
  8. LIPITOR [Concomitant]
  9. ASPIRIN [Concomitant]
  10. HYDROCODONE [Concomitant]
  11. ALLEGRA [Concomitant]
  12. THEOPHYLLIN ER [Concomitant]
  13. TRICOR [Concomitant]
  14. XANAX [Concomitant]
  15. CARDIZEM [Concomitant]
  16. FLOGARD [Concomitant]
  17. COMBIVENT [Concomitant]
  18. FLOVENT [Concomitant]

REACTIONS (4)
  - ACTIVITIES OF DAILY LIVING IMPAIRED [None]
  - HYPERGLYCAEMIA [None]
  - MENTAL STATUS CHANGES [None]
  - PNEUMONIA [None]
